FAERS Safety Report 7312901-5 (Version None)
Quarter: 2011Q1

REPORT INFORMATION
  Report Type: 
  Country: None (occurrence: None)
  Receive Date: 20110224
  Receipt Date: 20110214
  Transmission Date: 20110831
  Serious: Yes (Death, Other)
  Sender: FDA-Public Use
  Company Number: US-ROCHE-759449

PATIENT

DRUGS (5)
  1. MYCOPHENOLATE MOFETIL [Suspect]
     Dosage: STATRTED ON POST OPERATIVE DAY 2.
     Route: 065
  2. METHYLPREDNISOLONE [Suspect]
     Dosage: 500 MG IN THE OPERATING ROOM, 250 MG ON POSTOPERATIVE DAY 1, AND 125 MG ON POSTOPERATIVE DAY 2.
     Route: 042
  3. CAMPATH [Suspect]
     Route: 042
  4. VALGANCICLOVIR [Suspect]
     Route: 065
  5. TACROLIMUS [Suspect]
     Dosage: STARTED ON POSTOPERATIVE DAY 1
     Route: 065

REACTIONS (21)
  - ANGIOSARCOMA METASTATIC [None]
  - COLON CANCER METASTATIC [None]
  - PNEUMOCYSTIS JIROVECI PNEUMONIA [None]
  - HYPERTENSION [None]
  - CARDIAC ARREST [None]
  - CYTOMEGALOVIRUS INFECTION [None]
  - HEPATIC NEOPLASM MALIGNANT RECURRENT [None]
  - BILIARY ISCHAEMIA [None]
  - HEPATIC ARTERY THROMBOSIS [None]
  - HERPES ZOSTER [None]
  - DIABETES MELLITUS [None]
  - FUNGAL INFECTION [None]
  - TRANSPLANT FAILURE [None]
  - GLIOBLASTOMA MULTIFORME [None]
  - SEPSIS [None]
  - LEUKAEMIA [None]
  - DEATH [None]
  - TRANSPLANT REJECTION [None]
  - HERPES SIMPLEX [None]
  - BACTERIAL INFECTION [None]
  - LYMPHOPENIA [None]
